FAERS Safety Report 9319625 (Version 6)
Quarter: 2015Q1

REPORT INFORMATION
  Report Type: Spontaneous
  Country: US (occurrence: US)
  Receive Date: 20130530
  Receipt Date: 20150326
  Transmission Date: 20150721
  Serious: Yes (Hospitalization, Other)
  Sender: FDA-Public Use
  Company Number: US-GLAXOSMITHKLINE-A1015553A

PATIENT
  Age: 52 Year
  Sex: Male
  Weight: 71 kg

DRUGS (6)
  1. FLOLAN [Suspect]
     Active Substance: EPOPROSTENOL SODIUM
     Dates: start: 20120213
  2. SILDENAFIL. [Concomitant]
     Active Substance: SILDENAFIL
  3. COUMADIN [Concomitant]
     Active Substance: WARFARIN SODIUM
  4. FLOLAN [Suspect]
     Active Substance: EPOPROSTENOL SODIUM
     Indication: PULMONARY ARTERIAL HYPERTENSION
     Dates: start: 20120213
  5. FLOLAN [Suspect]
     Active Substance: EPOPROSTENOL SODIUM
     Indication: COR PULMONALE CHRONIC
     Dosage: 36.5 NG/KG/MIN38 NG/KG/MIN, CONCENTRATION 60,000 NG/ML, PUMP RATE 61 ML/DAY, VIAL STRENGTH 1.5 MG
     Route: 042
     Dates: start: 20120213
  6. FLOLAN [Suspect]
     Active Substance: EPOPROSTENOL SODIUM
     Dates: start: 20120213

REACTIONS (10)
  - Device breakage [Recovered/Resolved]
  - Catheter site infection [Recovered/Resolved]
  - Device related infection [Recovered/Resolved]
  - Diarrhoea [Recovered/Resolved]
  - Pain in extremity [Recovered/Resolved]
  - Pain in jaw [Recovered/Resolved]
  - Pneumonia [Recovered/Resolved]
  - Flushing [Recovered/Resolved]
  - Central venous catheterisation [Recovered/Resolved]
  - Headache [Recovered/Resolved]

NARRATIVE: CASE EVENT DATE: 201302
